FAERS Safety Report 9805464 (Version 1)
Quarter: 2014Q1

REPORT INFORMATION
  Report Type: Spontaneous
  Country: US (occurrence: None)
  Receive Date: 20140108
  Receipt Date: 20140108
  Transmission Date: 20141002
  Serious: Yes (Disabling)
  Sender: FDA-Public Use
  Company Number: None

PATIENT
  Age: 63 Year
  Sex: Female
  Weight: 109.77 kg

DRUGS (14)
  1. ARMIDEX, 1 MG, ASTRAZENECA [Suspect]
     Indication: BREAST CANCER
     Dosage: 1 PILL
     Route: 048
     Dates: start: 20111111, end: 20131005
  2. GABAPENTIN [Concomitant]
  3. K+ [Concomitant]
  4. LASIX [Concomitant]
  5. AMILIRIDE [Concomitant]
  6. ENALAPRIL [Concomitant]
  7. ASPIRIN [Concomitant]
  8. COUMADIN [Concomitant]
  9. PRAVASTATIN [Concomitant]
  10. METHOTREXATE [Concomitant]
  11. FOLIC ACID [Concomitant]
  12. PREDISONE [Concomitant]
  13. PROZAC [Concomitant]
  14. RESTORIL [Concomitant]

REACTIONS (10)
  - Fatigue [None]
  - Asthenia [None]
  - Dermatitis [None]
  - Nausea [None]
  - Vomiting [None]
  - Diarrhoea [None]
  - Weight decreased [None]
  - Dehydration [None]
  - Walking aid user [None]
  - Activities of daily living impaired [None]
